FAERS Safety Report 12349667 (Version 1)
Quarter: 2016Q2

REPORT INFORMATION
  Report Type: Spontaneous
  Country: US (occurrence: US)
  Receive Date: 20160510
  Receipt Date: 20160510
  Transmission Date: 20160815
  Serious: No
  Sender: FDA-Public Use
  Company Number: US-TEVA-636081USA

PATIENT
  Sex: Male

DRUGS (2)
  1. ZOLPIDEM [Suspect]
     Active Substance: ZOLPIDEM\ZOLPIDEM TARTRATE
     Indication: INSOMNIA
     Route: 065
  2. ESZOPICLONE. [Suspect]
     Active Substance: ESZOPICLONE
     Indication: INSOMNIA
     Route: 065

REACTIONS (5)
  - Amnesia [Unknown]
  - Nausea [Unknown]
  - Product taste abnormal [Unknown]
  - Somnolence [Unknown]
  - Abdominal discomfort [Unknown]
